FAERS Safety Report 18685221 (Version 1)
Quarter: 2020Q4

REPORT INFORMATION
  Report Type: Spontaneous
  Country: GB (occurrence: GB)
  Receive Date: 20201230
  Receipt Date: 20201230
  Transmission Date: 20210114
  Serious: Yes (Hospitalization, Disabling, Other)
  Sender: FDA-Public Use
  Company Number: GB-MYLANLABS-2020M1105289

PATIENT
  Age: 30 Year
  Sex: Female

DRUGS (2)
  1. MIRTAZAPINE. [Suspect]
     Active Substance: MIRTAZAPINE
     Indication: DEPRESSION
     Dosage: 7.5 MILLIGRAM
     Route: 048
     Dates: start: 20180901
  2. MIRTAZAPINE. [Suspect]
     Active Substance: MIRTAZAPINE
     Dosage: 15 MILLIGRAM
     Route: 048
     Dates: end: 20200430

REACTIONS (12)
  - Limb discomfort [Unknown]
  - Partial seizures [Recovering/Resolving]
  - Deja vu [Unknown]
  - Feeling abnormal [Unknown]
  - Psychogenic seizure [Recovering/Resolving]
  - Muscular weakness [Unknown]
  - Speech disorder [Unknown]
  - Visual impairment [Unknown]
  - Dysarthria [Unknown]
  - Diplopia [Unknown]
  - Vertigo [Unknown]
  - Head discomfort [Unknown]

NARRATIVE: CASE EVENT DATE: 20180901
